FAERS Safety Report 4730685-1 (Version None)
Quarter: 2005Q3

REPORT INFORMATION
  Report Type: 
  Country: None (occurrence: None)
  Receive Date: 20050725
  Receipt Date: 20050225
  Transmission Date: 20060218
  Serious: No
  Sender: FDA-Public Use
  Company Number: USA050291889

PATIENT
  Age: 24 Year
  Sex: Female
  Weight: 102 kg

DRUGS (2)
  1. STRATTERA [Suspect]
     Indication: ATTENTION DEFICIT/HYPERACTIVITY DISORDER
     Dosage: 40 MG IN THE MORNING
     Dates: start: 20050101
  2. CELEXA [Concomitant]

REACTIONS (2)
  - FLUSHING [None]
  - PALPITATIONS [None]
